FAERS Safety Report 18350409 (Version 1)
Quarter: 2020Q4

REPORT INFORMATION
  Report Type: Spontaneous
  Country: US (occurrence: US)
  Receive Date: 20201006
  Receipt Date: 20201006
  Transmission Date: 20210114
  Serious: Yes (Hospitalization, Disabling, Other)
  Sender: FDA-Public Use
  Company Number: US-PURDUE-USA-2020-0168294

PATIENT
  Sex: Female

DRUGS (1)
  1. HYDROCODONE BITARTRATE AND ACETAMINOPHEN [Suspect]
     Active Substance: ACETAMINOPHEN\HYDROCODONE BITARTRATE
     Indication: ARTHRALGIA
     Dosage: UNK
     Route: 048

REACTIONS (13)
  - Depression [Unknown]
  - Cardiac disorder [Unknown]
  - Overdose [Unknown]
  - Myocardial infarction [Unknown]
  - Anxiety [Unknown]
  - Major depression [Unknown]
  - Suicidal behaviour [Unknown]
  - Panic attack [Unknown]
  - Insomnia [Unknown]
  - Road traffic accident [Unknown]
  - Cardiac failure congestive [Unknown]
  - Drug dependence [Recovering/Resolving]
  - Disability [Unknown]
